FAERS Safety Report 14289698 (Version 1)
Quarter: 2017Q4

REPORT INFORMATION
  Report Type: Spontaneous
  Country: US (occurrence: US)
  Receive Date: 20171214
  Receipt Date: 20171214
  Transmission Date: 20180321
  Serious: Yes (Disabling, Other)
  Sender: FDA-Public Use
  Company Number: US-REGENERON PHARMACEUTICALS, INC.-2017-28736

PATIENT

DRUGS (6)
  1. BUPROPION. [Concomitant]
     Active Substance: BUPROPION
     Indication: PRODUCT USED FOR UNKNOWN INDICATION
     Dosage: UNK
  2. EYLEA [Suspect]
     Active Substance: AFLIBERCEPT
     Indication: NEOVASCULAR AGE-RELATED MACULAR DEGENERATION
     Dosage: 2 MG, UNK, OS
     Route: 031
     Dates: start: 201507
  3. SIMVASTATIN. [Concomitant]
     Active Substance: SIMVASTATIN
     Indication: PRODUCT USED FOR UNKNOWN INDICATION
     Dosage: UNK
  4. VITAMIN D [Concomitant]
     Active Substance: CHOLECALCIFEROL
     Indication: PRODUCT USED FOR UNKNOWN INDICATION
     Dosage: UNK
  5. LOSARTAN AND HYDROCHLOROTHIAZIDE [Concomitant]
     Active Substance: HYDROCHLOROTHIAZIDE\LOSARTAN POTASSIUM
     Indication: PRODUCT USED FOR UNKNOWN INDICATION
     Dosage: UNK
  6. EYLEA [Suspect]
     Active Substance: AFLIBERCEPT
     Dosage: 2 MG, UNK, OS, LAST DOSE
     Route: 031
     Dates: start: 20171128, end: 20171128

REACTIONS (9)
  - Injection site pain [Unknown]
  - Endophthalmitis [Unknown]
  - Eye irritation [Unknown]
  - Eye swelling [Unknown]
  - Visual acuity reduced [Not Recovered/Not Resolved]
  - Therapeutic response unexpected [Unknown]
  - Blindness unilateral [Not Recovered/Not Resolved]
  - Vitrectomy [Unknown]
  - Intraocular pressure decreased [Unknown]

NARRATIVE: CASE EVENT DATE: 2017
